FAERS Safety Report 20172076 (Version 1)
Quarter: 2021Q4

REPORT INFORMATION
  Report Type: Report from Study
  Country: RS (occurrence: RS)
  Receive Date: 20211210
  Receipt Date: 20211210
  Transmission Date: 20220303
  Serious: Yes (Other)
  Sender: FDA-Public Use
  Company Number: RS-TAKEDA-2021TUS077185

PATIENT
  Age: 42 Year
  Sex: Male
  Weight: 60 kg

DRUGS (4)
  1. VEDOLIZUMAB [Suspect]
     Active Substance: VEDOLIZUMAB
     Indication: Colitis ulcerative
     Dosage: 300 MILLIGRAM, Q4WEEKS
     Route: 042
     Dates: start: 20210602, end: 20211105
  2. Salofalk [Concomitant]
     Indication: Colitis ulcerative
     Dosage: 1 GRAM
     Route: 054
     Dates: start: 20210602
  3. Salofalk [Concomitant]
     Dosage: 3 GRAM
     Route: 048
     Dates: start: 20210602
  4. Salofalk [Concomitant]
     Dosage: 4 GRAM
     Route: 054
     Dates: start: 20210602

REACTIONS (2)
  - Colitis ulcerative [Not Recovered/Not Resolved]
  - Off label use [Unknown]

NARRATIVE: CASE EVENT DATE: 20210602
